FAERS Safety Report 4960934-6 (Version None)
Quarter: 2006Q1

REPORT INFORMATION
  Report Type: 
  Country: None (occurrence: None)
  Receive Date: 20060328
  Receipt Date: 20060315
  Transmission Date: 20060701
  Serious: Yes (Death, Hospitalization)
  Sender: FDA-Public Use
  Company Number: 2006033695

PATIENT
  Age: 74 Year
  Sex: Female

DRUGS (18)
  1. LYRICA [Suspect]
     Indication: PAIN
     Dosage: 75 MG (75 MG, ONCE), ORAL
     Route: 048
     Dates: start: 20050817, end: 20050817
  2. CONTALGIN [Suspect]
     Indication: PAIN
     Dosage: 150 MG (ORAL)
     Route: 048
  3. SEREVENT (SALMETROL XINAFOATE) [Concomitant]
  4. PULMICORT [Concomitant]
  5. TERBASMIN (TERBUTALINE SULFATE) [Concomitant]
  6. MONTELUKAST SODIUM [Concomitant]
  7. PREDNISOLONE [Concomitant]
  8. ESTRADIOL [Concomitant]
  9. OMEPRAZOLE [Concomitant]
  10. ACETAMINOPHEN [Concomitant]
  11. PACISYN (NITRAZEPAM) [Concomitant]
  12. CALCIUM GLUCONATE [Concomitant]
  13. DIDRONATE (ETIDRONATE DISODIUM) [Concomitant]
  14. DILTIAZEM HYDROCHLORIDE [Concomitant]
  15. FUROSEMIDE [Concomitant]
  16. POTASSIUM [Concomitant]
  17. VILAN (NICOMORPHINE) [Concomitant]
  18. NITROMEX (GLYCERYL TRINITRATE) [Concomitant]

REACTIONS (8)
  - DIZZINESS [None]
  - DRY MOUTH [None]
  - HEADACHE [None]
  - INTESTINAL FUNCTIONAL DISORDER [None]
  - NAUSEA [None]
  - RENAL DISORDER [None]
  - SOMNOLENCE [None]
  - VOMITING [None]
